FAERS Safety Report 6155902-5 (Version None)
Quarter: 2009Q2

REPORT INFORMATION
  Report Type: 
  Country: None (occurrence: None)
  Receive Date: 20090410
  Receipt Date: 20090410
  Transmission Date: 20091009
  Serious: Yes (Other)
  Sender: FDA-Public Use
  Company Number: None

PATIENT
  Age: 40 Year
  Sex: Female
  Weight: 56.6996 kg

DRUGS (1)
  1. ROPINIROLE [Suspect]
     Indication: RESTLESS LEGS SYNDROME
     Dosage: 1 1 AT BEDTIME PO
     Route: 048
     Dates: start: 20070218, end: 20080104

REACTIONS (3)
  - ECONOMIC PROBLEM [None]
  - GAMBLING [None]
  - MARITAL PROBLEM [None]
